FAERS Safety Report 9358905 (Version 1)
Quarter: 2013Q2

REPORT INFORMATION
  Report Type: Spontaneous
  Country: CN (occurrence: None)
  Receive Date: 20130617
  Receipt Date: 20130617
  Transmission Date: 20140414
  Serious: Yes (Other)
  Sender: FDA-Public Use
  Company Number: FK201301986

PATIENT
  Age: 89 Year
  Sex: Male

DRUGS (2)
  1. INTRALIPID [Suspect]
     Indication: STARVATION
     Route: 042
     Dates: start: 20120726, end: 20120726
  2. HEPARIN SODIUM (HEPARIN SODIUM) (HEPARIN SODIUM) [Concomitant]

REACTIONS (6)
  - Temperature intolerance [None]
  - Chills [None]
  - Dyspnoea [None]
  - Malaise [None]
  - Body temperature increased [None]
  - Infusion related reaction [None]
